FAERS Safety Report 5902621-3 (Version None)
Quarter: 2008Q3

REPORT INFORMATION
  Report Type: 
  Country: None (occurrence: None)
  Receive Date: 20080926
  Receipt Date: 20080915
  Transmission Date: 20090109
  Serious: Yes (Hospitalization, Other)
  Sender: FDA-Public Use
  Company Number: 2008AP002409

PATIENT
  Age: 61 Year
  Sex: Male

DRUGS (3)
  1. AMIODARONE HCL [Suspect]
     Indication: ATRIAL FIBRILLATION
     Dosage: 1000 MG;1X;IV;  800 MG;QD;IV;
     Route: 042
  2. AMILORIDE HYDROCHLORIDE [Suspect]
     Indication: ATRIAL FIBRILLATION
     Dosage: 400 MG;QD;PO;   800 MG;QD;PO
     Route: 048
  3. CORTICOSTEROIDS [Concomitant]

REACTIONS (4)
  - ACUTE RESPIRATORY FAILURE [None]
  - ATRIAL FIBRILLATION [None]
  - PLEURAL EFFUSION [None]
  - PULMONARY TOXICITY [None]
